FAERS Safety Report 13162790 (Version 1)
Quarter: 2017Q1

REPORT INFORMATION
  Report Type: Spontaneous
  Country: US (occurrence: US)
  Receive Date: 20170130
  Receipt Date: 20170130
  Transmission Date: 20170428
  Serious: Yes (Other)
  Sender: FDA-Public Use
  Company Number: US-PFIZER INC-2017036315

PATIENT
  Age: 56 Year
  Sex: Female

DRUGS (1)
  1. DUAVEE [Suspect]
     Active Substance: BAZEDOXIFENE ACETATE\ESTROGENS, CONJUGATED
     Indication: HOT FLUSH
     Dosage: 0.45/20 MG, 1X/DAY
     Route: 048
     Dates: start: 201609

REACTIONS (2)
  - Breast tenderness [Unknown]
  - Vaginal haemorrhage [Unknown]
